FAERS Safety Report 14602488 (Version 1)
Quarter: 2018Q1

REPORT INFORMATION
  Report Type: Spontaneous
  Country: US (occurrence: US)
  Receive Date: 20180306
  Receipt Date: 20180306
  Transmission Date: 20180509
  Serious: No
  Sender: FDA-Public Use
  Company Number: US-PFIZER INC-2018090352

PATIENT
  Age: 74 Year
  Sex: Male

DRUGS (2)
  1. IBUPROFEN. [Suspect]
     Active Substance: IBUPROFEN
     Dosage: UNK
  2. SODIUM BENZOATE [Suspect]
     Active Substance: SODIUM BENZOATE
     Dosage: UNK

REACTIONS (1)
  - Drug hypersensitivity [Unknown]
